FAERS Safety Report 5932147-2 (Version None)
Quarter: 2008Q4

REPORT INFORMATION
  Report Type: 
  Country: None (occurrence: None)
  Receive Date: 20081022
  Receipt Date: 20081007
  Transmission Date: 20090506
  Serious: Yes (Hospitalization, Other)
  Sender: FDA-Public Use
  Company Number: DSJ-2008-12238

PATIENT
  Age: 70 Year
  Sex: Male

DRUGS (5)
  1. OLMESARTAN MEDOXOMIL [Suspect]
     Indication: HYPERTENSION
     Dosage: 20 MG (20 MG,1 IN 1 D), PER ORAL
     Route: 048
     Dates: start: 20080904, end: 20080921
  2. NORVASC [Concomitant]
  3. BASEN (VOGLIBOSE) [Concomitant]
  4. GLYCYRON (AMINOACE ACID, DL-METHIONINE, GLYCYRRHIZIC ACID) (TABLET) (G [Concomitant]
  5. ACETYLSALICYLIC ACID SRT [Concomitant]

REACTIONS (1)
  - PLATELET COUNT DECREASED [None]
